FAERS Safety Report 20471642 (Version 4)
Quarter: 2022Q2

REPORT INFORMATION
  Report Type: Report from Study
  Country: US (occurrence: US)
  Receive Date: 20220214
  Receipt Date: 20220520
  Transmission Date: 20220721
  Serious: Yes (Other)
  Sender: FDA-Public Use
  Company Number: US-MYLANLABS-2021M1074982

PATIENT
  Sex: Female
  Weight: 61.23 kg

DRUGS (3)
  1. GLATIRAMER ACETATE [Suspect]
     Active Substance: GLATIRAMER ACETATE
     Indication: Relapsing-remitting multiple sclerosis
     Dosage: 40 MILLIGRAM, 3XW
     Route: 058
  2. GLATIRAMER ACETATE [Suspect]
     Active Substance: GLATIRAMER ACETATE
     Dosage: 40 MILLIGRAM, 3XW
     Route: 058
     Dates: start: 202112
  3. DEVICE [Suspect]
     Active Substance: DEVICE
     Indication: Multiple sclerosis
     Dosage: UNK

REACTIONS (13)
  - Multiple sclerosis relapse [Unknown]
  - Hypoaesthesia [Unknown]
  - Diarrhoea [Unknown]
  - Nasopharyngitis [Unknown]
  - Restless legs syndrome [Unknown]
  - Insomnia [Unknown]
  - Cardiac disorder [Unknown]
  - Back pain [Unknown]
  - Mood swings [Unknown]
  - Somnolence [Unknown]
  - Drug ineffective [Unknown]
  - Device issue [Unknown]
  - Injection site pain [Unknown]
